FAERS Safety Report 7383878-1 (Version None)
Quarter: 2011Q1

REPORT INFORMATION
  Report Type: 
  Country: None (occurrence: None)
  Receive Date: 20110322
  Receipt Date: 20110309
  Transmission Date: 20110831
  Serious: Yes (Death, Life-Threatening, Hospitalization)
  Sender: FDA-Public Use
  Company Number: FK201100411

PATIENT
  Sex: Female

DRUGS (6)
  1. PROPOFOL [Concomitant]
  2. VERCURONIUM (VERCURONIUM) [Concomitant]
  3. REMIFENTANIL (IREMIFENTANIL) [Concomitant]
  4. ANTIBIOTICS [Concomitant]
  5. SEVOFLURANE [Concomitant]
  6. DEXAMETHASONE SODIUM PHOSPHATE [Suspect]
     Indication: BRAIN OEDEMA
     Dosage: 4 MG, Q6H

REACTIONS (9)
  - DIABETIC KETOACIDOSIS [None]
  - BLOOD CREATININE INCREASED [None]
  - DIABETES INSIPIDUS [None]
  - BRAIN OEDEMA [None]
  - HYPERTENSION [None]
  - HYPERGLYCAEMIA [None]
  - BRADYCARDIA [None]
  - BRAIN MIDLINE SHIFT [None]
  - BLOOD UREA INCREASED [None]
